FAERS Safety Report 10662005 (Version 2)
Quarter: 2014Q4

REPORT INFORMATION
  Report Type: Spontaneous
  Country: US (occurrence: None)
  Receive Date: 20141216
  Receipt Date: 20141219
  Transmission Date: 20150529
  Serious: Yes (Other)
  Sender: FDA-Public Use
  Company Number: ADR-2014-02343

PATIENT
  Age: 58 Year
  Sex: Female

DRUGS (6)
  1. UNSPECIFIED ANALGESICS [Suspect]
     Active Substance: UNSPECIFIED INGREDIENT
  2. AKINETON [Suspect]
     Active Substance: BIPERIDEN HYDROCHLORIDE
  3. UNSPECIFIED ANXIETY TREATMENT [Suspect]
     Active Substance: UNSPECIFIED INGREDIENT
  4. BACLOFEN. [Suspect]
     Active Substance: BACLOFEN
     Indication: MUSCLE SPASTICITY
     Dosage: DAY
  5. CLONAZEPAM 02.5 MG [Suspect]
     Active Substance: CLONAZEPAM
  6. CLOZARIL [Suspect]
     Active Substance: CLOZAPINE

REACTIONS (17)
  - Burning sensation [None]
  - Pain [None]
  - Akathisia [None]
  - Vulvovaginal pain [None]
  - Dysarthria [None]
  - Parkinson^s disease [None]
  - Back pain [None]
  - Proctalgia [None]
  - Anxiety [None]
  - Psychosomatic disease [None]
  - Dyskinesia [None]
  - Oxygen saturation decreased [None]
  - Pruritus [None]
  - Muscle spasticity [None]
  - Stress [None]
  - Aphasia [None]
  - Death of relative [None]

NARRATIVE: CASE EVENT DATE: 20141001
